FAERS Safety Report 9751685 (Version 1)
Quarter: 2013Q4

REPORT INFORMATION
  Report Type: Report from Study
  Country: US (occurrence: US)
  Receive Date: 20131213
  Receipt Date: 20131213
  Transmission Date: 20140711
  Serious: Yes (Other)
  Sender: FDA-Public Use
  Company Number: US-ROCHE-1313875

PATIENT
  Sex: 0

DRUGS (2)
  1. CAPECITABINE [Suspect]
     Indication: ADENOCARCINOMA PANCREAS
     Route: 065
  2. 5-FU [Suspect]
     Indication: ADENOCARCINOMA PANCREAS
     Dosage: MEDIAN DOSE: 200MG/M2/DAY.
     Route: 065

REACTIONS (6)
  - Gastrointestinal toxicity [Unknown]
  - Nausea [Unknown]
  - Diarrhoea [Unknown]
  - Decreased appetite [Unknown]
  - Dehydration [Unknown]
  - Stomatitis [Unknown]
